FAERS Safety Report 15924850 (Version 2)
Quarter: 2022Q2

REPORT INFORMATION
  Report Type: Report from Study
  Country: US (occurrence: None)
  Receive Date: 20190206
  Receipt Date: 20220513
  Transmission Date: 20220721
  Serious: Yes (Other)
  Sender: FDA-Public Use
  Company Number: US-ROCHE-2259043

PATIENT
  Age: 70 Year
  Sex: Female
  Weight: 85.5 kg

DRUGS (4)
  1. ATEZOLIZUMAB [Suspect]
     Active Substance: ATEZOLIZUMAB
     Indication: Adenocarcinoma of colon
     Dosage: 840MG IV ON DAY 1, MOST RECENT DOSE ADMINISTERED PRIOR TO ONSET OF SAE ON 03/APR/2018
     Route: 041
     Dates: start: 20171205
  2. LEUCOVORIN CALCIUM [Suspect]
     Active Substance: LEUCOVORIN CALCIUM
     Indication: Adenocarcinoma of colon
     Dosage: 400MG/M2 IV OVER 2 HOURS ON DAY 1, MOST RECENT DOSE ADMINISTERED PRIOR TO ONSET OF SAE ON 03/APR/201
     Route: 042
     Dates: start: 20171205
  3. OXALIPLATIN [Suspect]
     Active Substance: OXALIPLATIN
     Indication: Adenocarcinoma of colon
     Dosage: 85MG/M2 IV OVER 2 HOURS ON DAY 1, MOST RECENT DOSE ADMINISTERED PRIOR TO ONSET OF SAE ON 03/APR/2018
     Route: 042
     Dates: start: 20171205
  4. FLUOROURACIL [Suspect]
     Active Substance: FLUOROURACIL
     Indication: Adenocarcinoma of colon
     Dosage: 400MG/M2 IV (BOLUS) ON DAY 1 FOLLOWED BY 2400MG/M2 IV OVER 46 HOURS DAYS 1-3, MOST RECENT DOSE ADMIN
     Route: 042
     Dates: start: 20171205

REACTIONS (1)
  - Hypokalaemia [Recovered/Resolved with Sequelae]

NARRATIVE: CASE EVENT DATE: 20180406
